FAERS Safety Report 7457525-4 (Version None)
Quarter: 2011Q2

REPORT INFORMATION
  Report Type: 
  Country: None (occurrence: None)
  Receive Date: 20110504
  Receipt Date: 20110503
  Transmission Date: 20111010
  Serious: Yes (Hospitalization)
  Sender: FDA-Public Use
  Company Number: US-BRISTOL-MYERS SQUIBB COMPANY-15714421

PATIENT
  Age: 85 Year
  Sex: Male

DRUGS (4)
  1. FOLIC ACID [Concomitant]
     Route: 048
  2. LYRICA [Concomitant]
     Route: 048
  3. IPILIMUMAB [Suspect]
     Indication: MALIGNANT MELANOMA
     Route: 042
     Dates: start: 20080101, end: 20110406
  4. SENNA [Concomitant]
     Dosage: 1DF=1TAB
     Route: 048

REACTIONS (1)
  - THROMBOCYTOPENIA [None]
